FAERS Safety Report 7606825 (Version 5)
Quarter: 2013Q4

REPORT INFORMATION
  Report Type: Spontaneous
  Country: US (occurrence: US)
  Receive Date: 20100927
  Receipt Date: 20131218
  Transmission Date: 20140711
  Serious: Yes (Life-Threatening, Hospitalization, Disabling, Other)
  Sender: FDA-Public Use
  Company Number: US-BAYER-201034402NA

PATIENT
  Age: 37 Year
  Sex: Female
  Weight: 58.96 kg

DRUGS (31)
  1. YAZ [Suspect]
     Indication: PREMENSTRUAL SYNDROME
     Dosage: 1 U, QD
     Route: 048
     Dates: start: 200710, end: 200712
  2. YAZ [Suspect]
     Indication: ORAL CONTRACEPTION
     Dosage: 1 U, QD
     Dates: start: 200804
  3. YAZ [Suspect]
     Indication: PREMENSTRUAL SYNDROME
     Dosage: DAILY DOSE 1 U
     Route: 048
     Dates: start: 200810, end: 200904
  4. YASMIN [Suspect]
     Indication: CONTRACEPTION
     Dosage: 1 U, QD
     Dates: start: 200712, end: 200804
  5. YASMIN [Suspect]
     Indication: PREMENSTRUAL SYNDROME
  6. LEVORA [Concomitant]
     Dosage: UNK
     Dates: start: 200508, end: 200706
  7. TOPAMAX [Concomitant]
     Indication: MIGRAINE
     Dosage: UNK
     Dates: start: 2006, end: 2009
  8. IMITREX [Concomitant]
     Indication: MIGRAINE
     Dosage: UNK
     Dates: start: 2006, end: 2009
  9. LEXAPRO [Concomitant]
     Indication: ANXIETY
  10. PRILOSEC [Concomitant]
     Indication: GASTROOESOPHAGEAL REFLUX DISEASE
  11. ZEGERID [Concomitant]
     Indication: GASTROOESOPHAGEAL REFLUX DISEASE
     Dosage: UNK
     Dates: start: 2007, end: 2009
  12. COREG [Concomitant]
     Indication: BLOOD PRESSURE MANAGEMENT
  13. ANALPRAM HC [Concomitant]
     Dosage: 2.5 %, UNK
     Route: 061
     Dates: start: 20090126
  14. COUMADIN [Concomitant]
  15. NYSTATIN [Concomitant]
  16. SILVADENE [Concomitant]
  17. XENADERM [Concomitant]
  18. LORTAB [Concomitant]
  19. ATIVAN [Concomitant]
     Dosage: 0.5 MG, UNK
  20. DITROPAN [Concomitant]
  21. POTASSIUM CHLORIDE [Concomitant]
  22. LYRICA [Concomitant]
  23. OMEPRAZOLE [Concomitant]
  24. AMBIEN [Concomitant]
  25. MULTIVITAMIN [Concomitant]
  26. NABUMETONE [Concomitant]
  27. MECLIZINE [Concomitant]
  28. FLORAQUIN [DIIODOHYDROXYQUINOLINE] [Concomitant]
  29. TYLENOL [PARACETAMOL] [Concomitant]
  30. VALTREX [Concomitant]
  31. VISTARIL [Concomitant]

REACTIONS (23)
  - Cardiac arrest [Unknown]
  - Pulmonary embolism [Unknown]
  - Arrhythmia [Unknown]
  - Cerebrovascular accident [None]
  - Pulmonary infarction [None]
  - Dyspnoea [Unknown]
  - Chest pain [Unknown]
  - Circulatory collapse [Unknown]
  - Multi-organ failure [None]
  - Respiratory failure [None]
  - Pneumonia staphylococcal [None]
  - Renal failure acute [Recovered/Resolved]
  - Intestinal ischaemia [None]
  - Peripheral ischaemia [None]
  - Onychomadesis [None]
  - Ischaemic ulcer [None]
  - Haematoma [None]
  - Blister [None]
  - Oedema [None]
  - Neuropathy peripheral [None]
  - Alopecia [None]
  - Toe amputation [None]
  - Anxiety [None]
